FAERS Safety Report 11714247 (Version 1)
Quarter: 2015Q4

REPORT INFORMATION
  Report Type: Spontaneous
  Country: US (occurrence: US)
  Receive Date: 20151109
  Receipt Date: 20151109
  Transmission Date: 20160304
  Serious: Yes (Other)
  Sender: FDA-Public Use
  Company Number: US-TEVA-606404ACC

PATIENT
  Sex: Female

DRUGS (1)
  1. PARAGARD T 380A [Suspect]
     Active Substance: COPPER
     Indication: CONTRACEPTION
     Route: 065

REACTIONS (5)
  - Muscle spasms [Unknown]
  - Rash erythematous [Unknown]
  - Fungal infection [Unknown]
  - Vaginal haemorrhage [Unknown]
  - Allergy to metals [Unknown]
